FAERS Safety Report 7901453-4 (Version None)
Quarter: 2011Q4

REPORT INFORMATION
  Report Type: 
  Country: None (occurrence: None)
  Receive Date: 20111108
  Receipt Date: 20111031
  Transmission Date: 20120403
  Serious: Yes (Other)
  Sender: FDA-Public Use
  Company Number: JP-JNJFOC-20110512248

PATIENT
  Sex: Female

DRUGS (4)
  1. TOPIRAMATE [Suspect]
     Route: 048
     Dates: start: 20091020, end: 20100218
  2. GABAPENTIN [Concomitant]
     Route: 048
     Dates: end: 20091009
  3. TOPIRAMATE [Suspect]
     Indication: EPILEPSY
     Route: 048
     Dates: start: 20091009, end: 20091019
  4. TOPIRAMATE [Suspect]
     Route: 048
     Dates: start: 20100219, end: 20100311

REACTIONS (2)
  - JAUNDICE [None]
  - WEIGHT DECREASED [None]
